FAERS Safety Report 9093116 (Version 2)
Quarter: 2013Q2

REPORT INFORMATION
  Report Type: Spontaneous
  Country: US (occurrence: US)
  Receive Date: 20130201
  Receipt Date: 20130411
  Transmission Date: 20140414
  Serious: Yes (Other)
  Sender: FDA-Public Use
  Company Number: US-ELI_LILLY_AND_COMPANY-US201301007651

PATIENT
  Sex: Female

DRUGS (1)
  1. HUMALOG 50% LISPRO, 50% NPL [Suspect]
     Dosage: 66 U, QD
     Route: 058

REACTIONS (3)
  - Hepatitis C [Unknown]
  - Blood glucose abnormal [Not Recovered/Not Resolved]
  - Injection site scar [Not Recovered/Not Resolved]
